FAERS Safety Report 5618228-1 (Version None)
Quarter: 2008Q1

REPORT INFORMATION
  Report Type: 
  Country: None (occurrence: None)
  Receive Date: 20080114
  Receipt Date: 20070430
  Transmission Date: 20080703
  Serious: Yes (Other)
  Sender: FDA-Public Use
  Company Number: A03200702790

PATIENT
  Age: 83 Year
  Sex: Male

DRUGS (3)
  1. LOVENOX [Suspect]
     Indication: CHEST PAIN
     Dosage: SUBCUTANEOUS
     Route: 058
  2. ANGIOMAX [Suspect]
     Indication: PERCUTANEOUS CORONARY INTERVENTION
     Dosage: INTRAVENOUS NOS
     Route: 042
  3. PLAVIX [Suspect]
     Dosage: NI UNK ORAL
     Route: 048

REACTIONS (1)
  - HAEMORRHAGIC STROKE [None]
